FAERS Safety Report 4616001-4 (Version None)
Quarter: 2005Q1

REPORT INFORMATION
  Report Type: 
  Country: None (occurrence: None)
  Receive Date: 20050323
  Receipt Date: 20050308
  Transmission Date: 20050727
  Serious: Yes (Death, Hospitalization)
  Sender: FDA-Public Use
  Company Number: NSADSS2002023120

PATIENT
  Sex: Female
  Weight: 60 kg

DRUGS (10)
  1. REMICADE [Suspect]
     Route: 041
     Dates: start: 20000404
  2. REMICADE [Suspect]
     Indication: RHEUMATOID ARTHRITIS
     Route: 041
     Dates: start: 20000404
  3. PREDNISONE [Suspect]
     Indication: RHEUMATOID ARTHRITIS
     Route: 049
     Dates: start: 20020606
  4. LEFLUNOMIDE [Suspect]
     Indication: POLYARTHRITIS
  5. LEFLUNOMIDE [Suspect]
     Indication: RHEUMATOID ARTHRITIS
  6. SEGURIL [Concomitant]
     Dates: start: 20020612
  7. BISOPROLOL FUMARATE [Concomitant]
     Indication: TACHYCARDIA
     Route: 065
  8. BISOPROLOL FUMARATE [Concomitant]
     Route: 065
  9. OMEPRAZOLE [Concomitant]
     Indication: GASTROINTESTINAL DISORDER THERAPY
     Dates: start: 19990101
  10. ATORVASTATIN CALCIUM [Concomitant]
     Indication: HYPERCHOLESTEROLAEMIA
     Dates: start: 20000101

REACTIONS (23)
  - ARTERIAL OCCLUSIVE DISEASE [None]
  - ASTHENIA [None]
  - CARDIAC MURMUR [None]
  - CARDIAC VALVE DISEASE [None]
  - COMA [None]
  - DYSPNOEA [None]
  - EJECTION FRACTION DECREASED [None]
  - ENDOCARDITIS BACTERIAL [None]
  - HAEMODYNAMIC INSTABILITY [None]
  - HEPATITIS C POSITIVE [None]
  - HYPOGLYCAEMIA [None]
  - MITRAL VALVE INCOMPETENCE [None]
  - OEDEMA [None]
  - ORTHOPNOEA [None]
  - PLEURAL DISORDER [None]
  - PLEURAL EFFUSION [None]
  - PYREXIA [None]
  - RENAL IMPAIRMENT [None]
  - RESPIRATORY FAILURE [None]
  - SEPTIC EMBOLUS [None]
  - SHOCK [None]
  - STAPHYLOCOCCAL SEPSIS [None]
  - STUPOR [None]
